FAERS Safety Report 11194183 (Version 4)
Quarter: 2016Q2

REPORT INFORMATION
  Report Type: Spontaneous
  Country: IT (occurrence: IT)
  Receive Date: 20150616
  Receipt Date: 20160614
  Transmission Date: 20160815
  Serious: Yes (Death, Hospitalization, Other)
  Sender: FDA-Public Use
  Company Number: IT-JNJFOC-20150605074

PATIENT
  Age: 57 Year
  Sex: Male

DRUGS (9)
  1. TIVICAY [Concomitant]
     Active Substance: DOLUTEGRAVIR SODIUM
     Indication: HIV INFECTION
     Route: 048
     Dates: start: 20150317
  2. RIFACOL [Concomitant]
     Active Substance: RIFAXIMIN
     Indication: PRODUCT USED FOR UNKNOWN INDICATION
     Route: 048
  3. OLYSIO [Suspect]
     Active Substance: SIMEPREVIR
     Indication: CHRONIC HEPATITIS C
     Route: 048
     Dates: start: 20150417, end: 20150618
  4. SOVALDI [Suspect]
     Active Substance: SOFOSBUVIR
     Indication: CHRONIC HEPATITIS C
     Route: 048
     Dates: start: 20150417, end: 20150707
  5. PORTOLAC [Concomitant]
     Active Substance: LACTITOL
     Indication: PRODUCT USED FOR UNKNOWN INDICATION
     Route: 048
  6. DIBASE [Concomitant]
     Active Substance: CHOLECALCIFEROL
     Indication: PRODUCT USED FOR UNKNOWN INDICATION
  7. LAMIVUDINE. [Concomitant]
     Active Substance: LAMIVUDINE
     Indication: HIV INFECTION
     Route: 048
     Dates: start: 20150317
  8. PROPANOL [Concomitant]
     Active Substance: PROPRANOLOL HYDROCHLORIDE
     Indication: VARICES OESOPHAGEAL
     Route: 065
  9. ALDACTONE [Concomitant]
     Active Substance: SPIRONOLACTONE
     Indication: PRODUCT USED FOR UNKNOWN INDICATION

REACTIONS (5)
  - Acute kidney injury [Fatal]
  - Hepatorenal syndrome [Fatal]
  - Hepatic failure [Not Recovered/Not Resolved]
  - Haematemesis [Not Recovered/Not Resolved]
  - Ascites [Not Recovered/Not Resolved]

NARRATIVE: CASE EVENT DATE: 20150512
